FAERS Safety Report 7039285-4 (Version None)
Quarter: 2010Q4

REPORT INFORMATION
  Report Type: 
  Country: None (occurrence: None)
  Receive Date: 20101012
  Receipt Date: 20100830
  Transmission Date: 20110411
  Serious: Yes (Other)
  Sender: FDA-Public Use
  Company Number: US-BAXTER-2009BH017208

PATIENT
  Age: 48 Year
  Sex: Female
  Weight: 65 kg

DRUGS (10)
  1. HEPARIN SODIUM INJECTION [Suspect]
     Indication: COMPUTERISED TOMOGRAM
     Route: 065
     Dates: start: 20080130
  2. HEPARIN SODIUM INJECTION [Suspect]
     Route: 040
     Dates: start: 20080131, end: 20080131
  3. HEPARIN SODIUM INJECTION [Suspect]
     Route: 040
     Dates: start: 20080202, end: 20080202
  4. HEPARIN SODIUM INJECTION [Suspect]
     Route: 040
     Dates: start: 20080204, end: 20080204
  5. SYNTHROID [Concomitant]
     Indication: PRODUCT USED FOR UNKNOWN INDICATION
     Route: 065
  6. XOPENEX [Concomitant]
     Indication: PRODUCT USED FOR UNKNOWN INDICATION
     Route: 065
  7. PREDNISONE [Concomitant]
     Indication: PRODUCT USED FOR UNKNOWN INDICATION
     Route: 065
  8. TRAMADOL [Concomitant]
     Indication: PRODUCT USED FOR UNKNOWN INDICATION
     Route: 065
  9. MUSCLE RELAXER [Concomitant]
     Indication: PRODUCT USED FOR UNKNOWN INDICATION
     Route: 065
  10. PULMICORT [Concomitant]
     Indication: PRODUCT USED FOR UNKNOWN INDICATION
     Route: 065

REACTIONS (14)
  - ABDOMINAL PAIN [None]
  - BLOOD GLUCOSE FLUCTUATION [None]
  - BLOOD PRESSURE DECREASED [None]
  - CONTUSION [None]
  - DIARRHOEA [None]
  - HAEMORRHAGE [None]
  - HEADACHE [None]
  - HEART RATE INCREASED [None]
  - HEPATIC ENZYME ABNORMAL [None]
  - HOT FLUSH [None]
  - HYPERHIDROSIS [None]
  - PERIPHERAL COLDNESS [None]
  - TREMOR [None]
  - VEIN DISORDER [None]
